FAERS Safety Report 21322465 (Version 6)
Quarter: 2022Q4

REPORT INFORMATION
  Report Type: Report from Study
  Country: CA (occurrence: CA)
  Receive Date: 20220912
  Receipt Date: 20221215
  Transmission Date: 20230112
  Serious: Yes (Disabling, Other)
  Sender: FDA-Public Use
  Company Number: CA-BRISTOL-MYERS SQUIBB COMPANY-2022-101998

PATIENT
  Age: 70 Year
  Sex: Male
  Weight: 62.14 kg

DRUGS (3)
  1. OPDIVO [Suspect]
     Active Substance: NIVOLUMAB
     Indication: Oesophageal adenocarcinoma
     Route: 042
     Dates: start: 20220302
  2. PANTOPRAZOLE [Concomitant]
     Active Substance: PANTOPRAZOLE
     Indication: Product used for unknown indication
     Dosage: PRN
  3. ROPINIROLE [Concomitant]
     Active Substance: ROPINIROLE
     Indication: Product used for unknown indication
     Dosage: PRN

REACTIONS (31)
  - Lymphadenopathy [Unknown]
  - Fatigue [Unknown]
  - Restless legs syndrome [Recovering/Resolving]
  - Weight increased [Unknown]
  - Peripheral swelling [Unknown]
  - Dizziness postural [Not Recovered/Not Resolved]
  - Fall [Unknown]
  - Confusional state [Unknown]
  - Brain oedema [Unknown]
  - Blister [Unknown]
  - Seizure [Recovered/Resolved]
  - Hemiparesis [Unknown]
  - Brain neoplasm [Unknown]
  - Vomiting [Unknown]
  - Agitation [Not Recovered/Not Resolved]
  - Somnolence [Not Recovered/Not Resolved]
  - Cough [Unknown]
  - Thirst [Not Recovered/Not Resolved]
  - Arthralgia [Not Recovered/Not Resolved]
  - Weight decreased [Unknown]
  - Taste disorder [Recovering/Resolving]
  - Alopecia [Recovering/Resolving]
  - Muscle fatigue [Not Recovered/Not Resolved]
  - Intentional product use issue [Unknown]
  - Procedural headache [Recovered/Resolved]
  - Poor quality sleep [Unknown]
  - Sluggishness [Unknown]
  - Irritability [Unknown]
  - Balance disorder [Unknown]
  - Erythema [Unknown]
  - Depression [Unknown]

NARRATIVE: CASE EVENT DATE: 20220828
